FAERS Safety Report 10384356 (Version 1)
Quarter: 2014Q3

REPORT INFORMATION
  Report Type: Other
  Country: IN (occurrence: IN)
  Receive Date: 20140814
  Receipt Date: 20140814
  Transmission Date: 20150326
  Serious: Yes (Other)
  Sender: FDA-Public Use
  Company Number: IN-LUPIN PHARMACEUTICALS INC.-2013-01791

PATIENT
  Age: 40 Year
  Sex: Male

DRUGS (10)
  1. PARACETAMOL [Concomitant]
     Active Substance: ACETAMINOPHEN
     Route: 048
  2. PREGABALIN. [Suspect]
     Active Substance: PREGABALIN
     Route: 048
  3. TRAMADOL [Concomitant]
     Active Substance: TRAMADOL
     Indication: POST HERPETIC NEURALGIA
     Route: 030
  4. ACICLOVIR [Concomitant]
     Active Substance: ACYCLOVIR
     Indication: RASH VESICULAR
     Route: 048
  5. ACICLOVIR [Concomitant]
     Active Substance: ACYCLOVIR
     Indication: RASH VESICULAR
     Route: 061
  6. ACICLOVIR [Concomitant]
     Active Substance: ACYCLOVIR
     Indication: RASH VESICULAR
  7. PREGABALIN. [Suspect]
     Active Substance: PREGABALIN
     Indication: POST HERPETIC NEURALGIA
     Route: 048
  8. PARACETAMOL [Concomitant]
     Active Substance: ACETAMINOPHEN
     Indication: POST HERPETIC NEURALGIA
     Route: 048
  9. ETORICOXIB [Concomitant]
     Active Substance: ETORICOXIB
     Indication: POST HERPETIC NEURALGIA
     Route: 065
  10. ACICLOVIR [Concomitant]
     Active Substance: ACYCLOVIR
     Indication: RASH VESICULAR

REACTIONS (1)
  - Hypersensitivity [Recovered/Resolved]
